FAERS Safety Report 10625792 (Version 1)
Quarter: 2014Q4

REPORT INFORMATION
  Report Type: Spontaneous
  Country: SE (occurrence: SE)
  Receive Date: 20141204
  Receipt Date: 20141204
  Transmission Date: 20150529
  Serious: Yes (Death)
  Sender: FDA-Public Use
  Company Number: SE-ASTRAZENECA-2014SE91151

PATIENT
  Age: 86 Year
  Sex: Female

DRUGS (8)
  1. IMOVANE [Suspect]
     Active Substance: ZOPICLONE
     Dosage: NO MORE THAN 290 MG
     Route: 048
     Dates: start: 201411, end: 201411
  2. ALVEDON (GLAXOSMITHKLINE) [Suspect]
     Active Substance: ACETAMINOPHEN
     Dosage: NO MORE THAN 50 G
     Route: 048
     Dates: start: 201411, end: 201411
  3. CANODERM [Concomitant]
  4. KLEXANE [Concomitant]
     Active Substance: ENOXAPARIN
     Dosage: 100 MG/ML
  5. ATACAND [Suspect]
     Active Substance: CANDESARTAN CILEXETIL
     Route: 048
     Dates: start: 201411, end: 201411
  6. METFORMIN (NON AZ PRODUCT) [Suspect]
     Active Substance: METFORMIN HYDROCHLORIDE
     Route: 048
     Dates: start: 201411, end: 201411
  7. TROMBYL [Suspect]
     Active Substance: ASPIRIN
     Route: 048
     Dates: start: 201411, end: 201411
  8. SALURES [Suspect]
     Active Substance: BENDROFLUMETHIAZIDE
     Route: 048
     Dates: start: 201411, end: 201411

REACTIONS (3)
  - Completed suicide [Fatal]
  - Loss of consciousness [Fatal]
  - Toxicity to various agents [Fatal]

NARRATIVE: CASE EVENT DATE: 20141111
